FAERS Safety Report 15138659 (Version 2)
Quarter: 2018Q3

REPORT INFORMATION
  Report Type: Report from Study
  Country: GB (occurrence: GB)
  Receive Date: 20180713
  Receipt Date: 20180907
  Transmission Date: 20181010
  Serious: Yes (Other)
  Sender: FDA-Public Use
  Company Number: GB-BRISTOL-MYERS SQUIBB COMPANY-BMS-2018-051294

PATIENT
  Age: 73 Year
  Sex: Male
  Weight: 64 kg

DRUGS (1)
  1. NIVOLUMAB [Suspect]
     Active Substance: NIVOLUMAB
     Indication: OESOPHAGEAL ADENOCARCINOMA
     Dosage: UNK, Q2WK
     Route: 042
     Dates: start: 20180516

REACTIONS (2)
  - Inguinal hernia [Unknown]
  - Pain [Unknown]

NARRATIVE: CASE EVENT DATE: 20180611
